FAERS Safety Report 17539152 (Version 2)
Quarter: 2020Q1

REPORT INFORMATION
  Report Type: Spontaneous
  Country: US (occurrence: US)
  Receive Date: 20200313
  Receipt Date: 20200319
  Transmission Date: 20200409
  Serious: No
  Sender: FDA-Public Use
  Company Number: US-PFIZER INC-2020109015

PATIENT
  Age: 74 Year
  Sex: Female

DRUGS (2)
  1. IBRANCE [Suspect]
     Active Substance: PALBOCICLIB
     Indication: BREAST CANCER FEMALE
     Dosage: 100 MG, CYCLIC, (100MG, CAPSULE, BY MOUTH, ONCE DAILY FOR 3 WEEKS ON, 7 DAYS OFF)
     Route: 048
     Dates: start: 201804, end: 20200305
  2. IBRANCE [Suspect]
     Active Substance: PALBOCICLIB
     Dosage: 100 MG, CYCLIC, (100MG, CAPSULE, BY MOUTH, ONCE DAILY FOR 3 WEEKS ON, 7 DAYS OFF)
     Route: 048

REACTIONS (1)
  - Blood count abnormal [Recovered/Resolved]

NARRATIVE: CASE EVENT DATE: 20200305
